FAERS Safety Report 5063229-8 (Version None)
Quarter: 2006Q3

REPORT INFORMATION
  Report Type: 
  Country: None (occurrence: None)
  Receive Date: 20060724
  Receipt Date: 20060724
  Transmission Date: 20061208
  Serious: Yes (Hospitalization)
  Sender: FDA-Public Use
  Company Number: 236405K05USA

PATIENT
  Age: 51 Year
  Sex: Male

DRUGS (3)
  1. REBIF [Suspect]
     Indication: MULTIPLE SCLEROSIS
     Dosage: 44 MCG, SUBCUTANEOUS
     Route: 058
     Dates: start: 20021127, end: 20050801
  2. REBIF [Suspect]
     Indication: MULTIPLE SCLEROSIS
     Dosage: 44 MCG, SUBCUTANEOUS
     Route: 058
     Dates: start: 20051101
  3. WELLBUTRIN [Concomitant]

REACTIONS (7)
  - BACTERIAL INFECTION [None]
  - DRUG INEFFECTIVE [None]
  - FALL [None]
  - INJECTION SITE ABSCESS [None]
  - INJECTION SITE BRUISING [None]
  - INJECTION SITE IRRITATION [None]
  - SLEEP DISORDER [None]
